FAERS Safety Report 15748273 (Version 1)
Quarter: 2018Q4

REPORT INFORMATION
  Report Type: Spontaneous
  Country: FR (occurrence: FR)
  Receive Date: 20181221
  Receipt Date: 20181221
  Transmission Date: 20190205
  Serious: Yes (Congenital Anomaly)
  Sender: FDA-Public Use
  Company Number: FR-SUN PHARMACEUTICAL INDUSTRIES LTD-2018RR-193920

PATIENT
  Sex: Male

DRUGS (2)
  1. CITALOPRAM [Suspect]
     Active Substance: CITALOPRAM HYDROBROMIDE
     Indication: DEPRESSION
     Dosage: 1 DOSAGE FORM, QD
     Route: 064
     Dates: start: 20180421, end: 20181015
  2. PAROXETINE. [Suspect]
     Active Substance: PAROXETINE
     Indication: DEPRESSION
     Dosage: 20 MILLIGRAM, QD
     Route: 064
     Dates: start: 20181016

REACTIONS (1)
  - Craniofacial deformity [Not Recovered/Not Resolved]

NARRATIVE: CASE EVENT DATE: 20181120
